FAERS Safety Report 26032762 (Version 1)
Quarter: 2025Q4

REPORT INFORMATION
  Report Type: Spontaneous
  Country: EU (occurrence: EU)
  Receive Date: 20251112
  Receipt Date: 20251112
  Transmission Date: 20260117
  Serious: Yes (Other)
  Sender: AMGEN
  Company Number: EU-AMGEN-ROUSP2025221601

PATIENT
  Age: 41 Year
  Sex: Male

DRUGS (2)
  1. XGEVA [Suspect]
     Active Substance: DENOSUMAB
     Indication: Metastases to bone
     Dosage: UNK
     Route: 065
     Dates: start: 202210
  2. VANDETANIB [Concomitant]
     Active Substance: VANDETANIB
     Dosage: UNK
     Dates: start: 202210

REACTIONS (5)
  - Parathyroid tumour benign [Unknown]
  - Phaeochromocytoma [Unknown]
  - Skin toxicity [Unknown]
  - Thyroid cancer metastatic [Unknown]
  - Therapy partial responder [Unknown]
